FAERS Safety Report 14409274 (Version 1)
Quarter: 2018Q1

REPORT INFORMATION
  Report Type: Spontaneous
  Country: RU (occurrence: RU)
  Receive Date: 20180119
  Receipt Date: 20180119
  Transmission Date: 20180509
  Serious: Yes (Other)
  Sender: FDA-Public Use
  Company Number: RU-ASTRAZENECA-2018SE05880

PATIENT
  Age: 71 Year
  Sex: Female

DRUGS (6)
  1. METFORMIN [Concomitant]
     Active Substance: METFORMIN HYDROCHLORIDE
  2. CARDICET [Concomitant]
  3. BRILINTA [Suspect]
     Active Substance: TICAGRELOR
     Indication: ANGINA UNSTABLE
     Route: 048
     Dates: start: 20161209
  4. ATORVASTATIN [Concomitant]
     Active Substance: ATORVASTATIN
  5. THROMBO ASS [Concomitant]
     Active Substance: ASPIRIN
  6. ISOKET [Concomitant]
     Active Substance: ISOSORBIDE DINITRATE

REACTIONS (4)
  - Product use issue [Not Recovered/Not Resolved]
  - Angina unstable [Unknown]
  - Off label use [Not Recovered/Not Resolved]
  - Dyspnoea [Not Recovered/Not Resolved]
